FAERS Safety Report 5218841-X (Version None)
Quarter: 2007Q1

REPORT INFORMATION
  Report Type: 
  Country: None (occurrence: None)
  Receive Date: 20070125
  Receipt Date: 20070112
  Transmission Date: 20070707
  Serious: Yes (Other)
  Sender: FDA-Public Use
  Company Number: FI-JNJFOC-20070104838

PATIENT
  Age: 14 Year
  Sex: Female

DRUGS (4)
  1. INFLIXIMAB [Suspect]
  2. INFLIXIMAB [Suspect]
     Indication: CROHN'S DISEASE
     Dosage: FOUR DOSES ON UNKNOWN DATES
  3. PREDNISOLONE [Concomitant]
     Indication: CROHN'S DISEASE
     Dosage: DOSE 2.5 MG ON ALTERNATE DAYS
  4. AZATHIOPRINE [Concomitant]
     Indication: CROHN'S DISEASE
     Dosage: DOSE 25 MG AND 12.5 MG

REACTIONS (1)
  - ANAPHYLACTIC REACTION [None]
